FAERS Safety Report 10520568 (Version 10)
Quarter: 2018Q2

REPORT INFORMATION
  Report Type: Report from Study
  Country: US (occurrence: US)
  Receive Date: 20141015
  Receipt Date: 20180413
  Transmission Date: 20180711
  Serious: Yes (Hospitalization, Disabling, Other)
  Sender: FDA-Public Use
  Company Number: US-SA-2014SA086886

PATIENT
  Age: 70 Year
  Sex: Female

DRUGS (4)
  1. AUBAGIO [Suspect]
     Active Substance: TERIFLUNOMIDE
     Indication: RELAPSING-REMITTING MULTIPLE SCLEROSIS
     Route: 048
  2. AUBAGIO [Suspect]
     Active Substance: TERIFLUNOMIDE
     Indication: RELAPSING-REMITTING MULTIPLE SCLEROSIS
     Route: 048
     Dates: start: 20140621
  3. AUBAGIO [Suspect]
     Active Substance: TERIFLUNOMIDE
     Indication: RELAPSING-REMITTING MULTIPLE SCLEROSIS
     Route: 048
     Dates: start: 201603, end: 201603
  4. AUBAGIO [Suspect]
     Active Substance: TERIFLUNOMIDE
     Indication: RELAPSING-REMITTING MULTIPLE SCLEROSIS
     Route: 048
     Dates: start: 20160323

REACTIONS (23)
  - Diarrhoea [Unknown]
  - Temperature intolerance [Unknown]
  - Renal stone removal [Unknown]
  - Blood magnesium decreased [Unknown]
  - Blood bilirubin increased [Recovered/Resolved]
  - Alopecia [Not Recovered/Not Resolved]
  - Hepatic enzyme increased [Recovered/Resolved]
  - Intentional product misuse [Unknown]
  - Joint space narrowing [Unknown]
  - White blood cell count decreased [Recovered/Resolved]
  - Restlessness [Recovering/Resolving]
  - Hair growth abnormal [Not Recovered/Not Resolved]
  - Nerve compression [Recovering/Resolving]
  - Multiple sclerosis relapse [Unknown]
  - Muscle spasms [Recovering/Resolving]
  - Balance disorder [Unknown]
  - Hypokinesia [Unknown]
  - Fatigue [Unknown]
  - Influenza [Unknown]
  - Multiple sclerosis [Unknown]
  - Abdominal discomfort [Unknown]
  - Laboratory test abnormal [Not Recovered/Not Resolved]
  - Paraesthesia [Unknown]

NARRATIVE: CASE EVENT DATE: 2014
